FAERS Safety Report 15521880 (Version 1)
Quarter: 2018Q4

REPORT INFORMATION
  Report Type: Spontaneous
  Country: US (occurrence: US)
  Receive Date: 20181018
  Receipt Date: 20181018
  Transmission Date: 20190205
  Serious: Yes (Life-Threatening)
  Sender: FDA-Public Use
  Company Number: None

PATIENT
  Age: 28 Year
  Sex: Male
  Weight: 94.05 kg

DRUGS (1)
  1. CLINDAMYCIN 300MG CAPSULES, MANUFACTURE: AUROBINDO, QUANTITY - 21 [Suspect]
     Active Substance: CLINDAMYCIN HYDROCHLORIDE
     Indication: INFECTION PROPHYLAXIS
     Dosage: ?          QUANTITY:21 CAPSULE(S);?
     Route: 048
     Dates: start: 20180920, end: 20180927

REACTIONS (2)
  - Clostridium difficile colitis [None]
  - Mental disorder [None]

NARRATIVE: CASE EVENT DATE: 20181015
